FAERS Safety Report 9036966 (Version 1)
Quarter: 2013Q1

REPORT INFORMATION
  Report Type: Spontaneous
  Country: US (occurrence: None)
  Receive Date: 20130123
  Receipt Date: 20130123
  Transmission Date: 20140127
  Serious: Yes (Other)
  Sender: FDA-Public Use
  Company Number: None

PATIENT
  Age: 3 Year
  Sex: Male
  Weight: 17.3 kg

DRUGS (2)
  1. KLONIPIN [Suspect]
     Indication: ANGELMAN^S SYNDROME
     Route: 048
     Dates: start: 20110302
  2. KLONIPIN [Suspect]
     Indication: EPILEPSY
     Route: 048
     Dates: start: 20110302

REACTIONS (2)
  - Convulsion [None]
  - Product substitution issue [None]
